FAERS Safety Report 14582363 (Version 3)
Quarter: 2018Q1

REPORT INFORMATION
  Report Type: Spontaneous
  Country: US (occurrence: US)
  Receive Date: 20180228
  Receipt Date: 20180306
  Transmission Date: 20180509
  Serious: Yes (Death, Hospitalization, Other)
  Sender: FDA-Public Use
  Company Number: US-INTERCEPT-PMOCA2018000164

PATIENT

DRUGS (1)
  1. OCALIVA [Suspect]
     Active Substance: OBETICHOLIC ACID
     Indication: PRIMARY BILIARY CHOLANGITIS
     Dosage: 5 MG, QD
     Route: 048
     Dates: start: 20180117

REACTIONS (6)
  - Aneurysm [Not Recovered/Not Resolved]
  - Tremor [Not Recovered/Not Resolved]
  - Yellow skin [Not Recovered/Not Resolved]
  - Strangulated hernia [Fatal]
  - Organ failure [Not Recovered/Not Resolved]
  - Headache [Not Recovered/Not Resolved]

NARRATIVE: CASE EVENT DATE: 2018
